FAERS Safety Report 4493534-5 (Version None)
Quarter: 2004Q4

REPORT INFORMATION
  Report Type: 
  Country: None (occurrence: None)
  Receive Date: 20041102
  Receipt Date: 20041102
  Transmission Date: 20050328
  Serious: Yes (Hospitalization)
  Sender: FDA-Public Use
  Company Number: None

PATIENT
  Age: 78 Year
  Sex: Female

DRUGS (7)
  1. WARFARIN SODIUM [Suspect]
     Indication: ATRIAL FIBRILLATION
     Dosage: 5 MG   EVERY T, TH     ORAL
     Route: 048
  2. WARFARIN SODIUM [Suspect]
     Dosage: 25 MG   OTHER DAYS    ORAL
     Route: 048
  3. AMLODIPINE [Concomitant]
  4. METOPROLOL TARTRATE [Concomitant]
  5. BENAZEPRIL HCL [Concomitant]
  6. FUROSEMIDE [Concomitant]
  7. GLIPIZIDE [Concomitant]

REACTIONS (1)
  - GASTROINTESTINAL HAEMORRHAGE [None]
